FAERS Safety Report 7680606-7 (Version None)
Quarter: 2011Q3

REPORT INFORMATION
  Report Type: 
  Country: None (occurrence: None)
  Receive Date: 20110812
  Receipt Date: 20110801
  Transmission Date: 20111222
  Serious: Yes (Hospitalization, Other)
  Sender: FDA-Public Use
  Company Number: US-ELI_LILLY_AND_COMPANY-US201108002089

PATIENT
  Sex: Female

DRUGS (12)
  1. ZYPREXA [Suspect]
     Indication: BIPOLAR DISORDER
     Dosage: 20 MG, QD
     Dates: start: 19960101
  2. METFORMIN HCL [Concomitant]
     Dosage: 500 MG, BID
  3. PROPRANOLOL [Concomitant]
     Dosage: UNK, EACH EVENING
  4. LOSARTAN POTASSIUM [Concomitant]
     Dosage: 100 MG, UNK
  5. TRAZODONE HCL [Concomitant]
     Dosage: UNK, EACH EVENING
  6. LUMIGAN [Concomitant]
  7. FERROUS SULFATE TAB [Concomitant]
     Dosage: 2 DF, QD
  8. TRAMADOL HCL [Concomitant]
     Dosage: 1 DF, PRN
  9. ASPIRIN [Concomitant]
     Dosage: 81 MG, UNK
  10. AROMASIN [Concomitant]
     Dosage: 1 DF, QD
  11. TEMAZEPAM [Concomitant]
     Dosage: 30 MG, EACH EVENING
  12. SIMVASTATIN [Concomitant]
     Dosage: 20 MG, UNK

REACTIONS (14)
  - BLOOD PRESSURE [None]
  - WEIGHT INCREASED [None]
  - BREAST CANCER [None]
  - MEMORY IMPAIRMENT [None]
  - MYALGIA [None]
  - BIPOLAR DISORDER [None]
  - MENTAL IMPAIRMENT [None]
  - DIABETES MELLITUS [None]
  - GAIT DISTURBANCE [None]
  - RESTLESS LEGS SYNDROME [None]
  - WEIGHT DECREASED [None]
  - DEPRESSION [None]
  - DEMENTIA [None]
  - ARTHRITIS [None]
